FAERS Safety Report 9120763 (Version 1)
Quarter: 2013Q1

REPORT INFORMATION
  Report Type: Spontaneous
  Country: US (occurrence: US)
  Receive Date: 20130226
  Receipt Date: 20130226
  Transmission Date: 20140127
  Serious: No
  Sender: FDA-Public Use
  Company Number: US-MYLANLABS-2012S1020421

PATIENT
  Age: 85 Year
  Sex: Female

DRUGS (8)
  1. LAMOTRIGINE [Suspect]
     Indication: CONVULSION
     Route: 048
     Dates: start: 201207
  2. LEVOXYL [Concomitant]
     Indication: HYPOTHYROIDISM
  3. CRESTOR [Concomitant]
     Indication: BLOOD CHOLESTEROL INCREASED
  4. METOPROLOL [Concomitant]
     Indication: BLOOD PRESSURE INCREASED
     Route: 048
  5. OMEPRAZOLE [Concomitant]
     Indication: GASTROOESOPHAGEAL REFLUX DISEASE
  6. ASPIRIN [Concomitant]
     Route: 048
  7. VITAMINS [Concomitant]
  8. CALCIUM [Concomitant]

REACTIONS (5)
  - Drug effect increased [Not Recovered/Not Resolved]
  - Burning sensation [Recovered/Resolved]
  - Erythema [Recovered/Resolved]
  - Rash [Recovered/Resolved]
  - Dry mouth [Recovered/Resolved]
